FAERS Safety Report 16824107 (Version 1)
Quarter: 2019Q3

REPORT INFORMATION
  Report Type: Spontaneous
  Country: IN (occurrence: US)
  Receive Date: 20190918
  Receipt Date: 20190918
  Transmission Date: 20191005
  Serious: Yes (Other)
  Sender: FDA-Public Use
  Company Number: IN-BAYER-2019-144726

PATIENT
  Age: 36 Year
  Sex: Male

DRUGS (6)
  1. BAYER LOW DOSE [Suspect]
     Active Substance: ASPIRIN
     Dosage: 81 MG
  2. OMALIZUMAB. [Concomitant]
     Active Substance: OMALIZUMAB
     Dosage: 300 MG
  3. MEPOLIZUMAB [Concomitant]
     Active Substance: MEPOLIZUMAB
     Dosage: 100 MG
  4. TIOTROPIUM [Concomitant]
     Active Substance: TIOTROPIUM
     Dosage: 300 MG
  5. PREDNISONE. [Concomitant]
     Active Substance: PREDNISONE
     Dosage: 5 MG
  6. METHYLPREDNISOLONE. [Concomitant]
     Active Substance: METHYLPREDNISOLONE
     Dosage: 60 MG

REACTIONS (5)
  - Aspirin-exacerbated respiratory disease [None]
  - Rhinorrhoea [None]
  - Nasal congestion [None]
  - Wheezing [None]
  - Forced expiratory volume decreased [None]
